FAERS Safety Report 7002452-X (Version None)
Quarter: 2010Q3

REPORT INFORMATION
  Report Type: 
  Country: None (occurrence: None)
  Receive Date: 20100920
  Receipt Date: 20100916
  Transmission Date: 20110219
  Serious: Yes (Other)
  Sender: FDA-Public Use
  Company Number: US-BRISTOL-MYERS SQUIBB COMPANY-15289366

PATIENT
  Age: 67 Year
  Sex: Female
  Weight: 68 kg

DRUGS (11)
  1. ORENCIA [Suspect]
     Dates: start: 20100701
  2. PLAQUENIL [Concomitant]
  3. ZYRTEC [Concomitant]
  4. KEPPRA [Concomitant]
  5. ACIPHEX [Concomitant]
  6. ADVAIR DISKUS 100/50 [Concomitant]
  7. SERTRALINE HYDROCHLORIDE [Concomitant]
  8. DETROL [Concomitant]
  9. PREDNISONE [Concomitant]
  10. AMLODIPINE BESYLATE [Concomitant]
  11. TRIAMTERENE AND HYDROCHLOROTHIAZIDE [Concomitant]
     Dosage: 1DF:75/50(UNIT NOT SPECIFIED)

REACTIONS (2)
  - CUSHING'S SYNDROME [None]
  - PNEUMONIA [None]
